FAERS Safety Report 9599546 (Version 1)
Quarter: 2013Q4

REPORT INFORMATION
  Report Type: Spontaneous
  Country: US (occurrence: US)
  Receive Date: 20131004
  Receipt Date: 20131004
  Transmission Date: 20140711
  Serious: No
  Sender: FDA-Public Use
  Company Number: US-AMGEN-USASP2013030375

PATIENT
  Age: 73 Year
  Sex: Female
  Weight: 58.96 kg

DRUGS (6)
  1. ENBREL [Suspect]
     Indication: PRODUCT USED FOR UNKNOWN INDICATION
     Dosage: 50 MG, QWK
     Route: 058
  2. ZANTAC [Concomitant]
     Dosage: 75 UNK, UNK
  3. B COMPLEX                          /00212701/ [Concomitant]
     Dosage: UNK
  4. VITAMIN D                          /00107901/ [Concomitant]
     Dosage: 1000 UNIT, UNK
  5. CELEXA                             /00582602/ [Concomitant]
     Dosage: 20 MG, UNK
  6. ADVAIR [Concomitant]
     Dosage: 100/50, UNK

REACTIONS (2)
  - Fall [Unknown]
  - Laceration [Unknown]
